FAERS Safety Report 4505791-7 (Version None)
Quarter: 2004Q4

REPORT INFORMATION
  Report Type: 
  Country: None (occurrence: None)
  Receive Date: 20041025
  Receipt Date: 20040202
  Transmission Date: 20050328
  Serious: Yes (Other)
  Sender: FDA-Public Use
  Company Number: US-JNJFOC-20031202629

PATIENT
  Age: 55 Year
  Sex: Male
  Weight: 137.4399 kg

DRUGS (13)
  1. REMICADE [Suspect]
     Indication: RHEUMATOID ARTHRITIS
     Dosage: INTRAVENOUS; SEE IMAGE
     Route: 042
     Dates: start: 20030701
  2. REMICADE [Suspect]
     Indication: RHEUMATOID ARTHRITIS
     Dosage: INTRAVENOUS; SEE IMAGE
     Route: 042
     Dates: start: 20031209
  3. METHOTREXATE [Concomitant]
  4. PREDNISONE [Concomitant]
  5. ASPIRIN [Concomitant]
  6. ELAVIL [Concomitant]
  7. PRINZIDE [Concomitant]
  8. PRILOSEC [Concomitant]
  9. GLUCOTROL [Concomitant]
  10. NEURONTIN [Concomitant]
  11. VICODIN [Concomitant]
  12. BENADRYL [Concomitant]
  13. PEPCID [Concomitant]

REACTIONS (3)
  - BACK PAIN [None]
  - CHEST PAIN [None]
  - HYPERTENSION [None]
